FAERS Safety Report 23662661 (Version 1)
Quarter: 2024Q1

REPORT INFORMATION
  Report Type: Spontaneous
  Country: GB (occurrence: GB)
  Receive Date: 20240322
  Receipt Date: 20240322
  Transmission Date: 20240410
  Serious: Yes (Other)
  Sender: FDA-Public Use
  Company Number: GB-BIOCODEX2-2024000339

PATIENT
  Sex: Male

DRUGS (4)
  1. DIACOMIT [Suspect]
     Active Substance: STIRIPENTOL
     Indication: Severe myoclonic epilepsy of infancy
     Dosage: 20MG/KG/DAY (120MG BD)
     Dates: start: 20240201
  2. DIACOMIT [Suspect]
     Active Substance: STIRIPENTOL
     Indication: Severe myoclonic epilepsy of infancy
     Dosage: 120 MG OD
  3. sodium valprate [Concomitant]
     Indication: Severe myoclonic epilepsy of infancy
  4. CLOBAZAM [Concomitant]
     Active Substance: CLOBAZAM
     Indication: Severe myoclonic epilepsy of infancy

REACTIONS (3)
  - Seizure [Unknown]
  - Sleep disorder [Not Recovered/Not Resolved]
  - Behaviour disorder [Unknown]

NARRATIVE: CASE EVENT DATE: 20240207
